FAERS Safety Report 9269578 (Version 1)
Quarter: 2013Q2

REPORT INFORMATION
  Report Type: Spontaneous
  Country: US (occurrence: US)
  Receive Date: 20130503
  Receipt Date: 20130503
  Transmission Date: 20140414
  Serious: Yes (Hospitalization)
  Sender: FDA-Public Use
  Company Number: US-BAYER-2013-053345

PATIENT
  Age: 38 Year
  Sex: Female

DRUGS (6)
  1. YASMIN [Suspect]
     Indication: MENORRHAGIA
  2. TUSSIONEX PENNKINETIC [Concomitant]
     Dosage: UNK
     Dates: start: 20041104
  3. ZITHROMAX [Concomitant]
     Dosage: UNK
     Dates: start: 20041104
  4. PREVACID [Concomitant]
  5. TRICOR [Concomitant]
  6. VICODIN [Concomitant]

REACTIONS (3)
  - Pulmonary embolism [None]
  - Deep vein thrombosis [None]
  - Cholecystitis chronic [None]
